FAERS Safety Report 15487598 (Version 1)
Quarter: 2018Q4

REPORT INFORMATION
  Report Type: Spontaneous
  Country: US (occurrence: US)
  Receive Date: 20181011
  Receipt Date: 20181011
  Transmission Date: 20190205
  Serious: Yes (Death)
  Sender: FDA-Public Use
  Company Number: US-ROCHE-2197209

PATIENT
  Age: 84 Year
  Sex: Male

DRUGS (1)
  1. RITUXAN [Suspect]
     Active Substance: RITUXIMAB
     Indication: NON-HODGKIN^S LYMPHOMA
     Dosage: ONGOING: UNKNOWN, STRENGH 10 G/ML
     Route: 042
     Dates: start: 20170510

REACTIONS (1)
  - Death [Fatal]

NARRATIVE: CASE EVENT DATE: 20171012
